FAERS Safety Report 10026174 (Version 2)
Quarter: 2014Q1

REPORT INFORMATION
  Report Type: Spontaneous
  Country: US (occurrence: US)
  Receive Date: 20140320
  Receipt Date: 20140320
  Transmission Date: 20141002
  Serious: No
  Sender: FDA-Public Use
  Company Number: US-ALLERGAN-1400977US

PATIENT
  Age: 70 Year
  Sex: Female

DRUGS (7)
  1. LUMIGAN 0.01% [Suspect]
     Indication: GLAUCOMA
     Dosage: 2 GTT, QHS
     Route: 047
     Dates: start: 20130612
  2. FEMORA [Concomitant]
     Indication: CANCER HORMONAL THERAPY
     Dosage: UNK, QD
     Route: 048
  3. LIPITOR [Concomitant]
     Indication: BLOOD CHOLESTEROL INCREASED
     Dosage: UNK
     Route: 048
  4. VITAMIN D [Concomitant]
     Indication: SUPPLEMENTATION THERAPY
     Dosage: UNK
  5. RECLAST [Concomitant]
     Indication: OSTEOPENIA
     Dosage: UNK
     Dates: start: 201304
  6. BIPHOSPHONATE [Concomitant]
     Indication: OSTEOPENIA
     Route: 048
  7. AZOPT [Concomitant]
     Indication: GLAUCOMA
     Dosage: 2 GTT, BID
     Route: 047

REACTIONS (1)
  - Intraocular pressure increased [Not Recovered/Not Resolved]
